FAERS Safety Report 9499691 (Version 1)
Quarter: 2013Q3

REPORT INFORMATION
  Report Type: Spontaneous
  Country: US (occurrence: None)
  Receive Date: 20130903
  Receipt Date: 20130903
  Transmission Date: 20140515
  Serious: No
  Sender: FDA-Public Use
  Company Number: None

PATIENT
  Age: 81 Year
  Sex: Female
  Weight: 69.85 kg

DRUGS (1)
  1. CANDESARTAN [Suspect]
     Indication: HYPERTENSION
     Route: 048
     Dates: start: 20130819, end: 20130820

REACTIONS (7)
  - Dizziness [None]
  - Nausea [None]
  - Gait disturbance [None]
  - Dyspnoea [None]
  - Speech disorder [None]
  - Bradyphrenia [None]
  - Hearing impaired [None]
